FAERS Safety Report 14006136 (Version 1)
Quarter: 2017Q3

REPORT INFORMATION
  Report Type: Report from Study
  Country: None (occurrence: SE)
  Receive Date: 20170924
  Receipt Date: 20170924
  Transmission Date: 20171128
  Serious: Yes (Hospitalization)
  Sender: FDA-Public Use
  Company Number: SE-BIOGEN-2017BV000042

PATIENT
  Sex: Male
  Weight: 13.5 kg

DRUGS (2)
  1. RFIXFC [Suspect]
     Active Substance: EFTRENONACOG ALFA
     Indication: FACTOR IX DEFICIENCY
     Route: 042
     Dates: start: 20160621
  2. TRANEXAMIC ACID. [Concomitant]
     Active Substance: TRANEXAMIC ACID
     Indication: PRODUCT USED FOR UNKNOWN INDICATION
     Dosage: ON DEMAND
     Route: 048
     Dates: start: 20160602

REACTIONS (1)
  - Poor venous access [Recovered/Resolved]

NARRATIVE: CASE EVENT DATE: 20170420
